FAERS Safety Report 4344086-1 (Version None)
Quarter: 2004Q2

REPORT INFORMATION
  Report Type: 
  Country: None (occurrence: None)
  Receive Date: 20040422
  Receipt Date: 20040413
  Transmission Date: 20050107
  Serious: Yes (Hospitalization)
  Sender: FDA-Public Use
  Company Number: GB-GLAXOSMITHKLINE-B0329815A

PATIENT
  Age: 79 Year
  Sex: Male

DRUGS (12)
  1. AVANDIA [Suspect]
     Indication: DIABETES MELLITUS NON-INSULIN-DEPENDENT
     Dosage: 8MG PER DAY
     Route: 048
     Dates: start: 20021001, end: 20040316
  2. ATORVASTATIN [Suspect]
     Indication: HYPERCHOLESTEROLAEMIA
     Dosage: 40MG PER DAY
     Route: 048
     Dates: start: 20031101, end: 20040311
  3. IBUPROFEN [Suspect]
     Dosage: 400MG PER DAY
     Route: 065
     Dates: start: 20010101, end: 20040311
  4. METFORMIN HCL [Concomitant]
     Dosage: 850MG PER DAY
     Route: 065
     Dates: start: 20040311
  5. GLICLAZIDE [Concomitant]
     Dosage: 80MG PER DAY
     Route: 065
  6. LEVOTHYROXINE SODIUM [Concomitant]
     Dosage: 175MCG PER DAY
     Route: 065
  7. RAMIPRIL [Concomitant]
     Dosage: 2.5MG PER DAY
     Route: 065
  8. OXYBUTYNIN [Concomitant]
     Dosage: 10MG PER DAY
     Route: 065
     Dates: start: 20031101
  9. CO-CODAMOL [Concomitant]
     Route: 065
  10. SILDENAFIL [Concomitant]
     Route: 065
  11. AMOXICILLIN [Concomitant]
     Dosage: 250MG PER DAY
     Route: 065
     Dates: start: 20031120, end: 20031125
  12. DOXYCYCLINE [Concomitant]
     Dosage: 100MG PER DAY
     Route: 065
     Dates: start: 20031128, end: 20031205

REACTIONS (7)
  - ALANINE AMINOTRANSFERASE INCREASED [None]
  - ASPARTATE AMINOTRANSFERASE INCREASED [None]
  - BLOOD ALKALINE PHOSPHATASE INCREASED [None]
  - BLOOD BILIRUBIN INCREASED [None]
  - CHOLELITHIASIS [None]
  - JAUNDICE [None]
  - LIVER FUNCTION TEST ABNORMAL [None]
